FAERS Safety Report 4959330-7 (Version None)
Quarter: 2006Q1

REPORT INFORMATION
  Report Type: 
  Country: None (occurrence: None)
  Receive Date: 20060331
  Receipt Date: 20060322
  Transmission Date: 20060701
  Serious: Yes (Hospitalization)
  Sender: FDA-Public Use
  Company Number: FR-JNJFOC-20060305575

PATIENT
  Age: 57 Year
  Sex: Female

DRUGS (9)
  1. RISPERDAL [Suspect]
     Indication: PSYCHOTIC DISORDER
     Route: 048
  2. HYTACAND [Suspect]
  3. HYTACAND [Suspect]
  4. TOPALGIC [Concomitant]
  5. CLIMASTON [Concomitant]
  6. CLIMASTON [Concomitant]
  7. TERCIAN [Concomitant]
  8. OROCAL VITAMINE D3 [Concomitant]
  9. OROCAL VITAMINE D3 [Concomitant]

REACTIONS (3)
  - CONVULSION [None]
  - ENCEPHALOPATHY [None]
  - HYPONATRAEMIA [None]
